FAERS Safety Report 9919779 (Version 2)
Quarter: 2014Q2

REPORT INFORMATION
  Report Type: Spontaneous
  Country: US (occurrence: US)
  Receive Date: 20140224
  Receipt Date: 20140401
  Transmission Date: 20141212
  Serious: No
  Sender: FDA-Public Use
  Company Number: US-PFIZER INC-2014052567

PATIENT
  Age: 6 Year
  Sex: Male
  Weight: 14.5 kg

DRUGS (4)
  1. GENOTROPIN [Suspect]
     Indication: GROWTH RETARDATION
     Dosage: 1.6 MG AND 1.8 MG DAILY ALTERNATIVELY EXCEPT SUNDAY
     Dates: start: 201312
  2. BETALONE [Concomitant]
     Dosage: UNK
  3. SPIROLACTONE [Concomitant]
     Dosage: UNK
  4. PREDNISONE [Concomitant]
     Dosage: UNK

REACTIONS (3)
  - Injection site haemorrhage [Unknown]
  - Off label use [Unknown]
  - Expired product administered [Unknown]
